FAERS Safety Report 20899829 (Version 1)
Quarter: 2022Q2

REPORT INFORMATION
  Report Type: Spontaneous
  Country: US (occurrence: None)
  Receive Date: 20220531
  Receipt Date: 20220531
  Transmission Date: 20220721
  Serious: No
  Sender: FDA-Public Use
  Company Number: None

PATIENT
  Age: 51 Year
  Sex: Female
  Weight: 56.25 kg

DRUGS (8)
  1. OXYCODONE [Suspect]
     Active Substance: OXYCODONE
     Indication: Pain
     Dosage: OTHER QUANTITY : 1 TABLET(S);?FREQUENCY : EVERY 4 HOURS;?
     Route: 048
     Dates: start: 20220407, end: 20220528
  2. NORETHINDRONE [Concomitant]
     Active Substance: NORETHINDRONE
  3. HYDROXYCHLOROQUINE [Concomitant]
     Active Substance: HYDROXYCHLOROQUINE
  4. VITAMIN D3 [Concomitant]
     Active Substance: CHOLECALCIFEROL
  5. MORPHINE [Concomitant]
     Active Substance: MORPHINE
  6. ASPIRIN [Concomitant]
     Active Substance: ASPIRIN
  7. VITAMIN C [Concomitant]
     Active Substance: ASCORBIC ACID
  8. SUDAFED [Concomitant]
     Active Substance: PSEUDOEPHEDRINE HYDROCHLORIDE

REACTIONS (6)
  - Migraine [None]
  - Pain [None]
  - Abdominal pain upper [None]
  - Hyperhidrosis [None]
  - Pruritus [None]
  - Loss of personal independence in daily activities [None]

NARRATIVE: CASE EVENT DATE: 20220505
